FAERS Safety Report 8984026 (Version 3)
Quarter: 2013Q1

REPORT INFORMATION
  Report Type: Spontaneous
  Country: US (occurrence: None)
  Receive Date: 20121214
  Receipt Date: 20121231
  Transmission Date: 20140127
  Serious: Yes (Other)
  Sender: FDA-Public Use
  Company Number: ADR-2012-02225

PATIENT
  Sex: Female

DRUGS (1)
  1. BACLOFEN INTRATHECAL [Suspect]
     Indication: MUSCLE SPASTICITY

REACTIONS (7)
  - Abdominal pain upper [None]
  - Flank pain [None]
  - Skin disorder [None]
  - Implant site pain [None]
  - Implant site mass [None]
  - Foreign body [None]
  - Discomfort [None]
